FAERS Safety Report 9375593 (Version 2)
Quarter: 2013Q3

REPORT INFORMATION
  Report Type: Report from Study
  Country: US (occurrence: US)
  Receive Date: 20130628
  Receipt Date: 20130826
  Transmission Date: 20140515
  Serious: Yes (Other)
  Sender: FDA-Public Use
  Company Number: US-VERTEX PHARMACEUTICALS INC-2013-007514

PATIENT
  Age: 50 Year
  Sex: Male

DRUGS (3)
  1. VX-770 [Suspect]
     Indication: CYSTIC FIBROSIS
     Dosage: UNK
     Route: 048
     Dates: start: 201209
  2. TOBI [Concomitant]
     Dosage: UNK, INHALER
     Dates: end: 201212
  3. TOBI [Concomitant]
     Dosage: UNK, NEBULIZER
     Dates: start: 201212

REACTIONS (3)
  - Pulmonary haemorrhage [Unknown]
  - Respiratory tract infection [Not Recovered/Not Resolved]
  - Drug ineffective [Unknown]
